FAERS Safety Report 20973226 (Version 1)
Quarter: 2022Q2

REPORT INFORMATION
  Report Type: Spontaneous
  Country: FR (occurrence: FR)
  Receive Date: 20220617
  Receipt Date: 20220617
  Transmission Date: 20220721
  Serious: Yes (Death)
  Sender: FDA-Public Use
  Company Number: None

PATIENT
  Age: 22 Year
  Sex: Female

DRUGS (6)
  1. DIAZEPAM [Suspect]
     Active Substance: DIAZEPAM
     Dosage: UNKNOWN
     Route: 065
     Dates: end: 202105
  2. ETHYL ALCOHOL [Suspect]
     Active Substance: ALCOHOL
     Dosage: UNKNOWN
     Route: 065
     Dates: end: 202105
  3. CANNABIS SATIVA SUBSP. INDICA TOP [Suspect]
     Active Substance: CANNABIS SATIVA SUBSP. INDICA TOP
     Dosage: UNKNOWN
     Route: 065
     Dates: end: 202105
  4. AMPHETAMINE [Suspect]
     Active Substance: AMPHETAMINE
     Dosage: UNKNOWN
     Route: 065
     Dates: end: 202105
  5. METHADONE [Suspect]
     Active Substance: METHADONE HYDROCHLORIDE
     Dosage: UNKNOWN
     Route: 065
     Dates: end: 202105
  6. COCAINE [Suspect]
     Active Substance: COCAINE
     Dosage: UNKNOWN
     Route: 065
     Dates: end: 202105

REACTIONS (3)
  - Depressed level of consciousness [Fatal]
  - Respiratory depression [Fatal]
  - Drug abuse [Fatal]
